FAERS Safety Report 20769344 (Version 1)
Quarter: 2022Q2

REPORT INFORMATION
  Report Type: Spontaneous
  Country: US (occurrence: US)
  Receive Date: 20220429
  Receipt Date: 20220429
  Transmission Date: 20220720
  Serious: No
  Sender: FDA-Public Use
  Company Number: US-TARO-2021TAR01159

PATIENT

DRUGS (1)
  1. FLUOROURACIL [Suspect]
     Active Substance: FLUOROURACIL
     Indication: Actinic keratosis
     Dosage: UNK, BID
     Route: 061
     Dates: start: 202111

REACTIONS (2)
  - Therapy interrupted [Unknown]
  - Product packaging issue [Unknown]

NARRATIVE: CASE EVENT DATE: 20211105
